FAERS Safety Report 5695903-4 (Version None)
Quarter: 2008Q2

REPORT INFORMATION
  Report Type: 
  Country: None (occurrence: None)
  Receive Date: 20080407
  Receipt Date: 20080327
  Transmission Date: 20081010
  Serious: Yes (Other)
  Sender: FDA-Public Use
  Company Number: NL-GENENTECH-258401

PATIENT
  Sex: Male
  Weight: 46 kg

DRUGS (8)
  1. XOLAIR [Suspect]
     Indication: DRUG USE FOR UNKNOWN INDICATION
     Dosage: 150 MG, X2
     Route: 058
     Dates: start: 20080115
  2. PREDNISOLONE [Concomitant]
     Indication: BRONCHOPULMONARY ASPERGILLOSIS ALLERGIC
     Dates: start: 20070101
  3. AZITHROMYCIN [Concomitant]
     Indication: DRUG USE FOR UNKNOWN INDICATION
  4. CREON [Concomitant]
     Indication: DRUG USE FOR UNKNOWN INDICATION
  5. VITAMINS [Concomitant]
     Indication: DRUG USE FOR UNKNOWN INDICATION
  6. SERETIDE [Concomitant]
     Indication: DRUG USE FOR UNKNOWN INDICATION
  7. TRISPORAL [Concomitant]
     Indication: DRUG USE FOR UNKNOWN INDICATION
  8. PULMOZYME [Concomitant]
     Indication: DRUG USE FOR UNKNOWN INDICATION

REACTIONS (5)
  - HYPERSENSITIVITY [None]
  - MUSCULOSKELETAL PAIN [None]
  - OBSTRUCTIVE AIRWAYS DISORDER [None]
  - RESPIRATORY TRACT INFECTION FUNGAL [None]
  - URTICARIA [None]
